FAERS Safety Report 19596942 (Version 2)
Quarter: 2021Q3

REPORT INFORMATION
  Report Type: Report from Study
  Country: US (occurrence: US)
  Receive Date: 20210722
  Receipt Date: 20210825
  Transmission Date: 20211014
  Serious: Yes (Death, Other)
  Sender: FDA-Public Use
  Company Number: US-TAKEDA-CA202011343

PATIENT
  Age: 39 Year
  Sex: Female
  Weight: 54 kg

DRUGS (17)
  1. TEDUGLUTIDE [Suspect]
     Active Substance: TEDUGLUTIDE
     Dosage: 0.228 MILLIGRAM (0.2300 MG/KG), 7 DOSES PER WEEK
     Route: 065
     Dates: start: 20160808, end: 20170627
  2. TEDUGLUTIDE [Suspect]
     Active Substance: TEDUGLUTIDE
     Dosage: 12.35 MILLIGRAM (0.05 MILLIGRAM/KILOGRAM DAILY DOSE), 7 DOSES PER WEEK
     Route: 065
     Dates: start: 20160808, end: 20171103
  3. TEDUGLUTIDE [Suspect]
     Active Substance: TEDUGLUTIDE
     Dosage: 12.35 MILLIGRAM (0.05 MILLIGRAM/KILOGRAM DAILY DOSE), 7 DOSES PER WEEK
     Route: 065
     Dates: start: 20160808, end: 20171103
  4. BACTROBAN [Concomitant]
     Active Substance: MUPIROCIN\MUPIROCIN CALCIUM
     Indication: SKIN DISORDER
     Dosage: 1 UNK, BID
     Route: 045
     Dates: start: 20180703
  5. ELIDEL [Concomitant]
     Active Substance: PIMECROLIMUS
     Indication: SKIN DISORDER
     Dosage: 1 UNK, BID
     Route: 048
     Dates: start: 20180703
  6. TEDUGLUTIDE [Suspect]
     Active Substance: TEDUGLUTIDE
     Indication: SHORT-BOWEL SYNDROME
     Dosage: 2.49 MILLIGRAM (0.05 MILLIGRAM/KILOGRAM DAILY DOSE), 7 DOSES PER WEEK
     Route: 065
     Dates: start: 20160705, end: 20160804
  7. TEDUGLUTIDE [Suspect]
     Active Substance: TEDUGLUTIDE
     Dosage: 12.35 MILLIGRAM (0.05 MILLIGRAM/KILOGRAM DAILY DOSE), 7 DOSES PER WEEK
     Route: 065
     Dates: start: 20160808, end: 20171103
  8. TEDUGLUTIDE [Suspect]
     Active Substance: TEDUGLUTIDE
     Dosage: 0.228 MILLIGRAM (0.2300 MG/KG), 7 DOSES PER WEEK
     Route: 065
     Dates: start: 20160808, end: 20170627
  9. TEDUGLUTIDE [Suspect]
     Active Substance: TEDUGLUTIDE
     Indication: SHORT-BOWEL SYNDROME
     Dosage: 2.49 MILLIGRAM (0.05 MILLIGRAM/KILOGRAM DAILY DOSE), 7 DOSES PER WEEK
     Route: 065
     Dates: start: 20160705, end: 20160804
  10. TEDUGLUTIDE [Suspect]
     Active Substance: TEDUGLUTIDE
     Indication: SHORT-BOWEL SYNDROME
     Dosage: 2.49 MILLIGRAM (0.05 MILLIGRAM/KILOGRAM DAILY DOSE), 7 DOSES PER WEEK
     Route: 065
     Dates: start: 20160705, end: 20160804
  11. TEDUGLUTIDE [Suspect]
     Active Substance: TEDUGLUTIDE
     Dosage: 0.228 MILLIGRAM (0.2300 MG/KG), 7 DOSES PER WEEK
     Route: 065
     Dates: start: 20160808, end: 20170627
  12. TEDUGLUTIDE [Suspect]
     Active Substance: TEDUGLUTIDE
     Dosage: 0.228 MILLIGRAM (0.2300 MG/KG), 7 DOSES PER WEEK
     Route: 065
     Dates: start: 20160808, end: 20170627
  13. TEDUGLUTIDE [Suspect]
     Active Substance: TEDUGLUTIDE
     Dosage: 12.35 MILLIGRAM (0.05 MILLIGRAM/KILOGRAM DAILY DOSE), 7 DOSES PER WEEK
     Route: 065
     Dates: start: 20160808, end: 20171103
  14. AZATHIOPRINE. [Concomitant]
     Active Substance: AZATHIOPRINE
     Indication: CROHN^S DISEASE
     Dosage: UNK
     Route: 065
  15. CUTIVATE [Concomitant]
     Active Substance: FLUTICASONE PROPIONATE
     Indication: SKIN DISORDER
     Dosage: 1 UNK, BID
     Route: 050
     Dates: start: 20180703
  16. TEDUGLUTIDE [Suspect]
     Active Substance: TEDUGLUTIDE
     Indication: SHORT-BOWEL SYNDROME
     Dosage: 2.49 MILLIGRAM (0.05 MILLIGRAM/KILOGRAM DAILY DOSE), 7 DOSES PER WEEK
     Route: 065
     Dates: start: 20160705, end: 20160804
  17. KLOR?CON [Concomitant]
     Active Substance: POTASSIUM CHLORIDE
     Indication: ELECTROLYTE SUBSTITUTION THERAPY
     Dosage: 20 UNITS, QD
     Route: 048
     Dates: start: 20171103, end: 20180515

REACTIONS (1)
  - Death [Fatal]

NARRATIVE: CASE EVENT DATE: 20190628
